FAERS Safety Report 4665512-4 (Version None)
Quarter: 2005Q2

REPORT INFORMATION
  Report Type: 
  Country: None (occurrence: None)
  Receive Date: 20050518
  Receipt Date: 20050428
  Transmission Date: 20051028
  Serious: Yes (Other)
  Sender: FDA-Public Use
  Company Number: USA050496860

PATIENT
  Age: 54 Year
  Sex: Female

DRUGS (4)
  1. FORTEO [Suspect]
     Indication: OSTEOPOROSIS
     Dates: start: 20041101, end: 20050401
  2. XANAX (ALPRAZOLAM DUM) [Concomitant]
  3. LEXAPRO [Concomitant]
  4. DESIPRAMIDE HCL [Concomitant]

REACTIONS (6)
  - DEPRESSION [None]
  - HEART RATE INCREASED [None]
  - INJECTION SITE ERYTHEMA [None]
  - INJECTION SITE URTICARIA [None]
  - PHARMACEUTICAL PRODUCT COMPLAINT [None]
  - SUICIDAL IDEATION [None]
